FAERS Safety Report 18146509 (Version 2)
Quarter: 2020Q4

REPORT INFORMATION
  Report Type: Report from Study
  Country: US (occurrence: US)
  Receive Date: 20200813
  Receipt Date: 20201014
  Transmission Date: 20210113
  Serious: Yes (Death, Life-Threatening, Hospitalization)
  Sender: FDA-Public Use
  Company Number: US-PFIZER INC-2019385761

PATIENT
  Age: 68 Year
  Sex: Female
  Weight: 98.4 kg

DRUGS (1)
  1. TALAZOPARIB. [Suspect]
     Active Substance: TALAZOPARIB
     Indication: BREAST CANCER
     Dosage: 0.5 MG, DAILY
     Route: 048
     Dates: start: 20180222, end: 20190902

REACTIONS (2)
  - Sepsis [Recovered/Resolved]
  - Death [Fatal]

NARRATIVE: CASE EVENT DATE: 20190902
